FAERS Safety Report 12944304 (Version 3)
Quarter: 2017Q1

REPORT INFORMATION
  Report Type: Spontaneous
  Country: US (occurrence: US)
  Receive Date: 20161115
  Receipt Date: 20170221
  Transmission Date: 20170428
  Serious: Yes (Other)
  Sender: FDA-Public Use
  Company Number: US-PFIZER INC-2016523416

PATIENT
  Age: 55 Year
  Sex: Male
  Weight: 82 kg

DRUGS (19)
  1. LISINOPRIL. [Concomitant]
     Active Substance: LISINOPRIL
     Indication: HYPERTENSION
     Dosage: 5 MG, 1X/DAY
  2. NIACIN. [Concomitant]
     Active Substance: NIACIN
     Indication: BLOOD PRESSURE MANAGEMENT
     Dosage: 500 MG, UNK
  3. FISH OIL [Concomitant]
     Active Substance: FISH OIL
     Indication: SUPPLEMENTATION THERAPY
  4. CELEBREX [Suspect]
     Active Substance: CELECOXIB
     Dosage: 200 MG, 1X/DAY
     Route: 048
     Dates: end: 2016
  5. METFORMIN [Concomitant]
     Active Substance: METFORMIN HYDROCHLORIDE
     Indication: BLOOD GLUCOSE ABNORMAL
     Dosage: 1000 MG, 2X/DAY
  6. CLONAZEPAN [Concomitant]
     Active Substance: CLONAZEPAM
     Dosage: .5 MG, 2X/DAY
  7. DIPHENHYDRAMINE. [Concomitant]
     Active Substance: DIPHENHYDRAMINE
     Indication: PULMONARY CONGESTION
     Dosage: 50 MG, DAILY, IN THE EVENING
  8. SKELAXIN [Concomitant]
     Active Substance: METAXALONE
     Indication: NECK INJURY
     Dosage: 800 MG, 2X/DAY
  9. LEVOTHYROXINE. [Concomitant]
     Active Substance: LEVOTHYROXINE
     Dosage: 25 UG, 1X/DAY
  10. LOVASTATIN. [Concomitant]
     Active Substance: LOVASTATIN
     Indication: BLOOD CHOLESTEROL ABNORMAL
     Dosage: 40 MG, 1X/DAY
  11. DAILY MULTIVITAMIN [Concomitant]
     Active Substance: VITAMINS
     Indication: SUPPLEMENTATION THERAPY
     Dosage: ONE COATED TABLET A DAY
  12. FISH OIL [Concomitant]
     Active Substance: FISH OIL
     Indication: BLOOD CHOLESTEROL ABNORMAL
     Dosage: 1000 MG, UNK
  13. SKELAXIN [Concomitant]
     Active Substance: METAXALONE
     Indication: MUSCLE TIGHTNESS
  14. FENTANYL. [Concomitant]
     Active Substance: FENTANYL
     Indication: PAIN MANAGEMENT
     Dosage: 75 UG, UNK
     Route: 062
  15. EFFEXOR [Concomitant]
     Active Substance: VENLAFAXINE HYDROCHLORIDE
     Indication: ANTIDEPRESSANT THERAPY
     Dosage: 75 MG, 1X/DAY
  16. DIPHENHYDRAMINE. [Concomitant]
     Active Substance: DIPHENHYDRAMINE
     Dosage: UNK
     Dates: end: 20170201
  17. ZOLPIDEM TARTRATE. [Concomitant]
     Active Substance: ZOLPIDEM TARTRATE
     Indication: SLEEP DISORDER
     Dosage: 0.25 MG, UNK
  18. ASPIRIN. [Suspect]
     Active Substance: ASPIRIN
     Indication: ANTICOAGULANT THERAPY
     Dosage: 81 MG, 1X/DAY
     Route: 048
     Dates: end: 201606
  19. GABAPENTIN. [Concomitant]
     Active Substance: GABAPENTIN
     Dosage: 600 MG, 2X/DAY

REACTIONS (3)
  - Abnormal faeces [Recovering/Resolving]
  - Melaena [Recovering/Resolving]
  - Constipation [Unknown]

NARRATIVE: CASE EVENT DATE: 2016
